FAERS Safety Report 5816058-9 (Version None)
Quarter: 2008Q3

REPORT INFORMATION
  Report Type: 
  Country: None (occurrence: None)
  Receive Date: 20080721
  Receipt Date: 20080709
  Transmission Date: 20090109
  Serious: Yes (Other)
  Sender: FDA-Public Use
  Company Number: JP-PURDUE-MAG_2008_0000708

PATIENT
  Age: 63 Year
  Sex: Male
  Weight: 63 kg

DRUGS (4)
  1. MORPHINE SULFATE CR TABLET 30 MG [Suspect]
     Indication: ABDOMINAL PAIN UPPER
     Dosage: 30 MG, DAILY
     Route: 048
     Dates: start: 20070101, end: 20070101
  2. NITRAZEPAM [Concomitant]
     Indication: INSOMNIA
     Dosage: 5 MG, UNK
     Route: 065
  3. ZOPICLONE [Concomitant]
     Indication: INSOMNIA
     Dosage: 7.5 MG, UNK
     Route: 065
  4. ZOLPIDEM TARTRATE [Concomitant]
     Indication: INSOMNIA
     Dosage: 5 MG, UNK
     Route: 065

REACTIONS (2)
  - CONSTIPATION [None]
  - HEPATIC ENCEPHALOPATHY [None]
